FAERS Safety Report 8439069-6 (Version None)
Quarter: 2012Q2

REPORT INFORMATION
  Report Type: 
  Country: None (occurrence: None)
  Receive Date: 20120615
  Receipt Date: 20120604
  Transmission Date: 20120825
  Serious: Yes (Life-Threatening, Hospitalization)
  Sender: FDA-Public Use
  Company Number: ES-MILLENNIUM PHARMACEUTICALS, INC.-2012-03920

PATIENT

DRUGS (3)
  1. PREDNISONE [Suspect]
     Indication: MULTIPLE MYELOMA
     Dosage: 100 MG, UNK
     Route: 048
     Dates: start: 20110819, end: 20120506
  2. MELPHALAN HYDROCHLORIDE [Suspect]
     Indication: MULTIPLE MYELOMA
     Dosage: 15 MG, UNK
     Route: 048
     Dates: start: 20110819, end: 20120506
  3. VELCADE [Suspect]
     Indication: MULTIPLE MYELOMA
     Dosage: 2.17 MG, UNK
     Route: 042
     Dates: start: 20110819, end: 20120524

REACTIONS (1)
  - SEPTIC SHOCK [None]
